FAERS Safety Report 17062305 (Version 2)
Quarter: 2019Q4

REPORT INFORMATION
  Report Type: Report from Study
  Country: RU (occurrence: RU)
  Receive Date: 20191122
  Receipt Date: 20191129
  Transmission Date: 20200122
  Serious: Yes (Other)
  Sender: FDA-Public Use
  Company Number: RU-ROCHE-2478636

PATIENT

DRUGS (3)
  1. CYTARABINE. [Suspect]
     Active Substance: CYTARABINE
     Indication: MANTLE CELL LYMPHOMA
     Dosage: 12 G/M2
     Route: 065
  2. RITUXIMAB. [Suspect]
     Active Substance: RITUXIMAB
     Indication: MANTLE CELL LYMPHOMA
     Route: 041
  3. BENDAMUSTINE [Suspect]
     Active Substance: BENDAMUSTINE
     Indication: MANTLE CELL LYMPHOMA
     Route: 065

REACTIONS (16)
  - Infusion related reaction [Unknown]
  - Vomiting [Unknown]
  - Mucosal inflammation [Unknown]
  - Anaemia [Unknown]
  - Pneumonia [Unknown]
  - Sepsis [Unknown]
  - Functional gastrointestinal disorder [Unknown]
  - Transaminases increased [Unknown]
  - Nausea [Unknown]
  - Anal fissure [Unknown]
  - Stomatitis [Unknown]
  - Pyrexia [Unknown]
  - Thrombocytopenia [Unknown]
  - Leukopenia [Unknown]
  - Cytarabine syndrome [Unknown]
  - Viral infection [Unknown]
